FAERS Safety Report 22249266 (Version 3)
Quarter: 2023Q4

REPORT INFORMATION
  Report Type: Spontaneous
  Country: US (occurrence: US)
  Receive Date: 20230425
  Receipt Date: 20231127
  Transmission Date: 20240109
  Serious: No
  Sender: FDA-Public Use
  Company Number: US-SA-SAC20230421000725

PATIENT
  Sex: Female

DRUGS (1)
  1. DUPIXENT [Suspect]
     Active Substance: DUPILUMAB
     Dosage: 300MG, FREQUENCY: OTHER
     Route: 058

REACTIONS (3)
  - Condition aggravated [Unknown]
  - Accidental exposure to product [Unknown]
  - Exposure via skin contact [Unknown]
